FAERS Safety Report 16312443 (Version 3)
Quarter: 2019Q2

REPORT INFORMATION
  Report Type: Spontaneous
  Country: US (occurrence: US)
  Receive Date: 20190515
  Receipt Date: 20190524
  Transmission Date: 20190711
  Serious: Yes (Other)
  Sender: FDA-Public Use
  Company Number: US-PFIZER INC-2019202870

PATIENT
  Age: 13 Year
  Sex: Male
  Weight: 75 kg

DRUGS (6)
  1. RAPAMUNE [Suspect]
     Active Substance: SIROLIMUS
     Indication: EPILEPSY
  2. STRATTERA [Concomitant]
     Active Substance: ATOMOXETINE HYDROCHLORIDE
     Indication: ATTENTION DEFICIT/HYPERACTIVITY DISORDER
     Dosage: 60 MG, 1X/DAY
     Route: 048
  3. RAPAMUNE [Suspect]
     Active Substance: SIROLIMUS
     Indication: ASTROCYTOMA, LOW GRADE
  4. TRILEPTAL [Concomitant]
     Active Substance: OXCARBAZEPINE
     Indication: SEIZURE
     Dosage: 600 MG, 2X/DAY
     Route: 048
  5. RAPAMUNE [Suspect]
     Active Substance: SIROLIMUS
     Indication: ANGIOFIBROMA
     Dosage: 2 MG, 1X/DAY
     Route: 048
     Dates: start: 2017
  6. RAPAMUNE [Suspect]
     Active Substance: SIROLIMUS
     Indication: TUBEROUS SCLEROSIS COMPLEX

REACTIONS (5)
  - Seizure [Unknown]
  - Therapeutic response unexpected [Unknown]
  - Product use in unapproved indication [Unknown]
  - Off label use [Unknown]
  - Pre-existing condition improved [Unknown]
